FAERS Safety Report 7474579-X (Version None)
Quarter: 2011Q2

REPORT INFORMATION
  Report Type: 
  Country: None (occurrence: None)
  Receive Date: 20110503
  Receipt Date: 20110421
  Transmission Date: 20111010
  Serious: Yes (Disabling, Other)
  Sender: FDA-Public Use
  Company Number: LTI2011A00098

PATIENT
  Age: 62 Year
  Sex: Male

DRUGS (1)
  1. ACTOS [Suspect]
     Indication: TYPE 2 DIABETES MELLITUS
     Dosage: 15 MG (15 MG,1 IN 1 D) ORAL
     Route: 048
     Dates: start: 20110201

REACTIONS (2)
  - ASTHMATIC CRISIS [None]
  - BRONCHIAL OBSTRUCTION [None]
